FAERS Safety Report 21627099 (Version 1)
Quarter: 2022Q4

REPORT INFORMATION
  Report Type: Spontaneous
  Country: US (occurrence: None)
  Receive Date: 20221122
  Receipt Date: 20221122
  Transmission Date: 20230112
  Serious: No
  Sender: FDA-Public Use
  Company Number: US-ROCHE-2946346

PATIENT
  Age: 19 Year
  Sex: Female

DRUGS (5)
  1. PULMOZYME [Suspect]
     Active Substance: DORNASE ALFA
     Indication: Cystic fibrosis
     Dosage: 1 MG/ML INHALATION SC
     Route: 055
  2. DIAZEPAM [Concomitant]
     Active Substance: DIAZEPAM
     Dosage: LIQUID
  3. FELBAMATE [Concomitant]
     Active Substance: FELBAMATE
  4. FLUTICASONE [Concomitant]
     Active Substance: FLUTICASONE
  5. PHENOBARBITAL [Concomitant]
     Active Substance: PHENOBARBITAL

REACTIONS (1)
  - Productive cough [Recovered/Resolved]

NARRATIVE: CASE EVENT DATE: 20211020
